FAERS Safety Report 5959435-8 (Version None)
Quarter: 2008Q4

REPORT INFORMATION
  Report Type: 
  Country: None (occurrence: None)
  Receive Date: 20081120
  Receipt Date: 20081023
  Transmission Date: 20090506
  Serious: No
  Sender: FDA-Public Use
  Company Number: A0751342A

PATIENT
  Age: 6 Year
  Sex: Male
  Weight: 32.7 kg

DRUGS (2)
  1. VERAMYST [Suspect]
     Indication: MULTIPLE ALLERGIES
     Dosage: 2SPR PER DAY
     Route: 045
     Dates: end: 20080101
  2. SINGULAIR [Concomitant]

REACTIONS (1)
  - URTICARIA [None]
